FAERS Safety Report 4528876-8 (Version None)
Quarter: 2004Q4

REPORT INFORMATION
  Report Type: 
  Country: None (occurrence: None)
  Receive Date: 20041214
  Receipt Date: 20041203
  Transmission Date: 20050328
  Serious: Yes (Hospitalization)
  Sender: FDA-Public Use
  Company Number: 2004-122313-NL

PATIENT
  Age: 46 Year
  Sex: Male

DRUGS (4)
  1. MIRTAZAPINE [Suspect]
     Dosage: DF
     Route: 048
  2. OLANZAPINE [Suspect]
     Indication: MAJOR DEPRESSION
     Dosage: 10 MG
     Route: 048
     Dates: start: 20040914, end: 20041111
  3. SULPIRIDE [Suspect]
     Indication: MAJOR DEPRESSION
     Dosage: 400 MG
     Route: 048
     Dates: start: 20041014, end: 20041020
  4. CITALOPRAM [Concomitant]

REACTIONS (1)
  - NEUROLEPTIC MALIGNANT SYNDROME [None]
